FAERS Safety Report 6152761-1 (Version None)
Quarter: 2009Q2

REPORT INFORMATION
  Report Type: 
  Country: None (occurrence: None)
  Receive Date: 20090409
  Receipt Date: 20090324
  Transmission Date: 20091009
  Serious: Yes (Hospitalization)
  Sender: FDA-Public Use
  Company Number: 8044294

PATIENT

DRUGS (1)
  1. KEPPRA [Suspect]
     Dosage: 60 MG/KG /D PO
     Route: 048

REACTIONS (3)
  - ERYTHEMA [None]
  - HYPERHIDROSIS [None]
  - PYREXIA [None]
